FAERS Safety Report 17785345 (Version 1)
Quarter: 2020Q2

REPORT INFORMATION
  Report Type: Spontaneous
  Country: US (occurrence: US)
  Receive Date: 20200513
  Receipt Date: 20200513
  Transmission Date: 20200714
  Serious: No
  Sender: FDA-Public Use
  Company Number: US-TEVA-2020-US-1234204

PATIENT
  Sex: Female
  Weight: 54 kg

DRUGS (1)
  1. SUMATRIPTAN TEVA [Suspect]
     Active Substance: SUMATRIPTAN
     Indication: MIGRAINE
     Route: 065

REACTIONS (1)
  - Injection site pain [Recovered/Resolved]
